FAERS Safety Report 8195631-X (Version None)
Quarter: 2012Q1

REPORT INFORMATION
  Report Type: 
  Country: None (occurrence: None)
  Receive Date: 20120308
  Receipt Date: 20120302
  Transmission Date: 20120608
  Serious: Yes (Other)
  Sender: FDA-Public Use
  Company Number: FR-PFIZER INC-2012056336

PATIENT
  Age: 67 Year
  Sex: Female

DRUGS (2)
  1. AROMASIN [Suspect]
     Dosage: 25 MG, 1X/DAY
     Dates: start: 20120130
  2. SPIRONOLACTONE [Concomitant]
     Dosage: UNK
     Dates: start: 20110801

REACTIONS (1)
  - TOXIC SKIN ERUPTION [None]
